FAERS Safety Report 4668893-0 (Version None)
Quarter: 2005Q2

REPORT INFORMATION
  Report Type: 
  Country: None (occurrence: None)
  Receive Date: 20050523
  Receipt Date: 20040423
  Transmission Date: 20051028
  Serious: Yes (Other)
  Sender: FDA-Public Use
  Company Number: PHBS2004BR05542

PATIENT
  Age: 60 Year
  Sex: Female

DRUGS (3)
  1. CHEMOTHERAPEUTICS,OTHER [Concomitant]
  2. HORMONES AND RELATED AGENTS [Concomitant]
  3. ZOMETA [Suspect]
     Indication: METASTASES TO BONE

REACTIONS (6)
  - ASEPTIC NECROSIS BONE [None]
  - OSTEOMYELITIS [None]
  - PAIN IN JAW [None]
  - PYREXIA [None]
  - TOOTH DISORDER [None]
  - WOUND DEBRIDEMENT [None]
